FAERS Safety Report 5643400-4 (Version None)
Quarter: 2008Q1

REPORT INFORMATION
  Report Type: 
  Country: None (occurrence: None)
  Receive Date: 20080228
  Receipt Date: 20080218
  Transmission Date: 20080703
  Serious: Yes (Hospitalization)
  Sender: FDA-Public Use
  Company Number: DE-ELI_LILLY_AND_COMPANY-DE200802004733

PATIENT
  Age: 48 Year
  Sex: Male

DRUGS (3)
  1. CYMBALTA [Suspect]
     Indication: DEPRESSION
     Dosage: 60 MG, 2/D
     Route: 048
  2. RENACOR [Concomitant]
     Dosage: UNK, DAILY (1/D)
  3. NEBILET [Concomitant]
     Dosage: 2.5 MG, DAILY (1/D)

REACTIONS (2)
  - BLOOD PRESSURE DECREASED [None]
  - FATIGUE [None]
